FAERS Safety Report 6766521-1 (Version None)
Quarter: 2010Q2

REPORT INFORMATION
  Report Type: 
  Country: None (occurrence: None)
  Receive Date: 20100611
  Receipt Date: 20100603
  Transmission Date: 20101027
  Serious: Yes (Hospitalization)
  Sender: FDA-Public Use
  Company Number: JP-MERCK-1005USA00911

PATIENT
  Age: 78 Year
  Sex: Female
  Weight: 42 kg

DRUGS (4)
  1. FOSAMAX [Suspect]
     Indication: OSTEOPOROSIS
     Route: 048
     Dates: start: 20041109, end: 20081029
  2. WARKMIN [Concomitant]
     Indication: OSTEOPOROSIS
     Route: 048
     Dates: start: 20081030
  3. EVISTA [Concomitant]
     Indication: OSTEOPOROSIS
     Route: 048
     Dates: start: 20081030
  4. BENET [Suspect]
     Indication: OSTEOPOROSIS
     Route: 048
     Dates: start: 20021111, end: 20041108

REACTIONS (1)
  - FEMUR FRACTURE [None]
